FAERS Safety Report 13584861 (Version 2)
Quarter: 2017Q3

REPORT INFORMATION
  Report Type: Spontaneous
  Country: US (occurrence: US)
  Receive Date: 20170526
  Receipt Date: 20170712
  Transmission Date: 20171127
  Serious: No
  Sender: FDA-Public Use
  Company Number: US-009507513-1705USA005699

PATIENT
  Age: 29 Year
  Sex: Female
  Weight: 54.06 kg

DRUGS (3)
  1. FOLLISTIM [Concomitant]
     Active Substance: FOLLITROPIN
  2. GANIRELIX ACETATE INJECTION [Suspect]
     Active Substance: GANIRELIX ACETATE
     Indication: ANOVULATORY CYCLE
     Dosage: 250 MICROGRAM, 3 DOSES
     Route: 058
     Dates: start: 20170509, end: 20170513
  3. MENOPUR [Concomitant]
     Active Substance: FOLLITROPIN\LUTEINIZING HORMONE

REACTIONS (3)
  - Drug administration error [Unknown]
  - Feeling abnormal [Recovered/Resolved]
  - Intentional overdose [Unknown]

NARRATIVE: CASE EVENT DATE: 20170509
